FAERS Safety Report 4425081-0 (Version None)
Quarter: 2004Q3

REPORT INFORMATION
  Report Type: 
  Country: None (occurrence: None)
  Receive Date: 20040809
  Receipt Date: 20040726
  Transmission Date: 20050211
  Serious: Yes (Hospitalization, Disabling)
  Sender: FDA-Public Use
  Company Number: 2004-BP-06108BP

PATIENT
  Age: 49 Year
  Sex: Male

DRUGS (1)
  1. MOBIC [Suspect]
     Indication: INFLAMMATION LOCALISED
     Dosage: 15 MG (15 MG, 1 QD), PO
     Route: 048
     Dates: start: 20030813, end: 20031103

REACTIONS (10)
  - ABDOMINAL PAIN UPPER [None]
  - CANDIDIASIS [None]
  - COLITIS [None]
  - DEHYDRATION [None]
  - DIARRHOEA HAEMORRHAGIC [None]
  - HAEMATEMESIS [None]
  - HAEMATOCHEZIA [None]
  - HERPES ZOSTER [None]
  - INFECTION [None]
  - PAIN [None]
